FAERS Safety Report 24996052 (Version 1)
Quarter: 2025Q1

REPORT INFORMATION
  Report Type: Spontaneous
  Country: US (occurrence: US)
  Receive Date: 20250221
  Receipt Date: 20250221
  Transmission Date: 20250409
  Serious: No
  Sender: CATALYST PHARMA
  Company Number: US-CATALYST PHARMACEUTICALS-US-CATA-24-01602

PATIENT
  Sex: Male
  Weight: 18.898 kg

DRUGS (4)
  1. AGAMREE [Suspect]
     Active Substance: VAMOROLONE
     Indication: Duchenne muscular dystrophy
     Dosage: 2.8 MILLILITER, QD
     Route: 048
     Dates: start: 20240820
  2. ALIGN PREBIOTIC AND PROBIOTIC [Concomitant]
     Indication: Gastrointestinal disorder
     Dosage: 5-1.25 MG AND G ONCE A DAY
     Route: 065
  3. CHILDREN^S CHEWABLE MULTIVITAMIN [Concomitant]
     Indication: Hypovitaminosis
     Dosage: ONCE A DAY
     Route: 065
  4. VITAMIN D3 [Concomitant]
     Active Substance: CHOLECALCIFEROL
     Indication: Hypovitaminosis
     Dosage: 2000 UNITS DAILY
     Route: 065

REACTIONS (2)
  - Rhinorrhoea [Recovered/Resolved]
  - Cough [Recovered/Resolved]

NARRATIVE: CASE EVENT DATE: 20240101
